FAERS Safety Report 20176660 (Version 5)
Quarter: 2022Q1

REPORT INFORMATION
  Report Type: Spontaneous
  Country: JP (occurrence: JP)
  Receive Date: 20211213
  Receipt Date: 20220217
  Transmission Date: 20220423
  Serious: Yes (Death, Life-Threatening, Hospitalization, Other)
  Sender: FDA-Public Use
  Company Number: JP-ONO-2021JP030138

PATIENT

DRUGS (8)
  1. ONGENTYS [Suspect]
     Active Substance: OPICAPONE
     Indication: Parkinson^s disease
     Dosage: 25 MILLIGRAM, DAILY
     Route: 048
     Dates: start: 20210930, end: 20211004
  2. ONGENTYS [Suspect]
     Active Substance: OPICAPONE
     Dosage: 25 MILLIGRAM, DAILY
     Route: 048
     Dates: start: 20211013
  3. CARBIDOPA\LEVODOPA [Concomitant]
     Active Substance: CARBIDOPA\LEVODOPA
     Dosage: UNKNOWN
  4. AZILECT [Concomitant]
     Active Substance: RASAGILINE MESYLATE
     Dosage: UNKNOWN
  5. ROPINIROLE [Concomitant]
     Active Substance: ROPINIROLE
     Dosage: UNKNOWN
  6. AMLODIPINE [Concomitant]
     Active Substance: AMLODIPINE BESYLATE
     Dosage: UNKNOWN
  7. RISEDRONATE SODIUM [Concomitant]
     Active Substance: RISEDRONATE SODIUM
     Dosage: UNKNOWN
  8. NEUPRO [Concomitant]
     Active Substance: ROTIGOTINE
     Dosage: UNKNOWN

REACTIONS (7)
  - Intestinal ischaemia [Fatal]
  - Pyelonephritis acute [Fatal]
  - Sepsis [Fatal]
  - Respiratory failure [Fatal]
  - Pyrexia [Fatal]
  - Disseminated intravascular coagulation [Unknown]
  - Feeling abnormal [Recovered/Resolved]

NARRATIVE: CASE EVENT DATE: 20210101
